FAERS Safety Report 5994949-6 (Version None)
Quarter: 2008Q4

REPORT INFORMATION
  Report Type: 
  Country: None (occurrence: None)
  Receive Date: 20081212
  Receipt Date: 20080918
  Transmission Date: 20090506
  Serious: No
  Sender: FDA-Public Use
  Company Number: US-ABBOTT-08P-163-0477138-00

PATIENT
  Sex: Female
  Weight: 53.118 kg

DRUGS (5)
  1. HUMIRA [Suspect]
     Indication: CROHN'S DISEASE
     Route: 058
     Dates: start: 20080611
  2. DARIFENACIN [Concomitant]
     Indication: HYPERTONIC BLADDER
  3. VITAMINS [Concomitant]
     Indication: VITAMIN SUPPLEMENTATION
     Route: 048
  4. LOMODAL [Concomitant]
     Indication: CROHN'S DISEASE
     Route: 048
  5. SERTRALINE [Concomitant]
     Indication: EX-TOBACCO USER
     Route: 048

REACTIONS (5)
  - INJECTION SITE ERYTHEMA [None]
  - INJECTION SITE PAPULE [None]
  - INJECTION SITE SWELLING [None]
  - INJECTION SITE WARMTH [None]
  - PETECHIAE [None]
